FAERS Safety Report 6421349-7 (Version None)
Quarter: 2009Q4

REPORT INFORMATION
  Report Type: 
  Country: None (occurrence: None)
  Receive Date: 20091030
  Receipt Date: 20091016
  Transmission Date: 20100525
  Serious: Yes (Other)
  Sender: FDA-Public Use
  Company Number: PHHY2009FR45093

PATIENT
  Sex: Male

DRUGS (1)
  1. TASIGNA [Suspect]
     Route: 048

REACTIONS (2)
  - NEOPLASM MALIGNANT [None]
  - RENAL CANCER [None]
